FAERS Safety Report 20649891 (Version 1)
Quarter: 2022Q1

REPORT INFORMATION
  Report Type: Spontaneous
  Country: US (occurrence: None)
  Receive Date: 20220329
  Receipt Date: 20220329
  Transmission Date: 20220424
  Serious: No
  Sender: FDA-Public Use
  Company Number: None

PATIENT
  Age: 60 Year
  Sex: Female
  Weight: 103.6 kg

DRUGS (17)
  1. IBRANCE [Suspect]
     Active Substance: PALBOCICLIB
     Indication: Breast cancer female
     Dosage: FREQUENCY : AS DIRECTED;?
     Route: 048
  2. ANASTROZOLE [Concomitant]
     Active Substance: ANASTROZOLE
  3. ASPIRIN [Concomitant]
     Active Substance: ASPIRIN
  4. CLONAZEPAM [Concomitant]
     Active Substance: CLONAZEPAM
  5. GLIMEPIRIDE [Concomitant]
     Active Substance: GLIMEPIRIDE
  6. IMITREX [Concomitant]
     Active Substance: SUMATRIPTAN SUCCINATE
  7. INDAPAMIDE [Concomitant]
     Active Substance: INDAPAMIDE
  8. MAGNESIUM [Concomitant]
     Active Substance: MAGNESIUM
  9. MELOXICAM [Concomitant]
     Active Substance: MELOXICAM
  10. METOPROLOL [Concomitant]
     Active Substance: METOPROLOL
  11. OMEGA3 [Concomitant]
  12. PANTOPRAZOLE [Concomitant]
     Active Substance: PANTOPRAZOLE
  13. POTASSIUM CHLORIDE [Concomitant]
     Active Substance: POTASSIUM CHLORIDE
  14. VITAMIN 86 [Concomitant]
  15. VITAMIN D3 [Concomitant]
     Active Substance: CHOLECALCIFEROL
  16. ZINC [Concomitant]
     Active Substance: ZINC
  17. GLUCONATE [Concomitant]

REACTIONS (1)
  - Platelet count decreased [None]
